FAERS Safety Report 7812275-7 (Version None)
Quarter: 2011Q4

REPORT INFORMATION
  Report Type: 
  Country: None (occurrence: None)
  Receive Date: 20111013
  Receipt Date: 20111005
  Transmission Date: 20120403
  Serious: Yes (Life-Threatening)
  Sender: FDA-Public Use
  Company Number: JP-CELGENEUS-087-21880-11080173

PATIENT
  Sex: Female
  Weight: 52 kg

DRUGS (14)
  1. ZOVIRAX [Concomitant]
     Indication: PROPHYLAXIS
     Dosage: 200 MILLIGRAM
     Route: 048
     Dates: start: 20110528, end: 20110715
  2. LENADEX [Suspect]
     Dosage: 40 MILLIGRAM
     Route: 048
     Dates: start: 20110625, end: 20110627
  3. LANSOPRAZOLE [Concomitant]
     Indication: PROPHYLAXIS
     Dosage: 15 MILLIGRAM
     Route: 048
     Dates: start: 20110502, end: 20110715
  4. DECADRON [Suspect]
     Indication: MULTIPLE MYELOMA
     Dosage: 40 MILLIGRAM
     Route: 048
     Dates: start: 20110502, end: 20110707
  5. SULFAMETHOXAZOLE [Concomitant]
     Indication: PROPHYLAXIS
     Dosage: 1 DOSAGE FORMS
     Route: 048
     Dates: start: 20110502, end: 20110715
  6. MONILAC [Concomitant]
     Indication: CONSTIPATION
     Dosage: 60 MILLILITER
     Route: 048
     Dates: start: 20110519, end: 20110715
  7. RED BLOOD CELLS [Concomitant]
     Route: 041
     Dates: start: 20110720, end: 20110720
  8. LENADEX [Suspect]
     Indication: MULTIPLE MYELOMA
     Dosage: 40 MILLIGRAM
     Route: 048
     Dates: start: 20110617, end: 20110620
  9. MAGMITT [Concomitant]
     Indication: CONSTIPATION
     Dosage: 1980 MILLIGRAM
     Route: 048
     Dates: start: 20110521, end: 20110715
  10. ITRACONAZOLE [Concomitant]
     Indication: PROPHYLAXIS
     Dosage: 200 MILLIGRAM
     Route: 048
     Dates: start: 20110607, end: 20110715
  11. RED BLOOD CELLS [Concomitant]
     Indication: HAEMORRHAGE
     Route: 041
     Dates: start: 20110715, end: 20110715
  12. REVLIMID [Suspect]
     Indication: MULTIPLE MYELOMA
     Dosage: 25 MILLIGRAM
     Route: 048
     Dates: start: 20110617, end: 20110627
  13. ASPIRIN [Concomitant]
     Indication: PROPHYLAXIS
     Dosage: 100 MILLIGRAM
     Route: 048
     Dates: start: 20110617, end: 20110715
  14. PANTOL [Concomitant]
     Indication: CONSTIPATION
     Dosage: 500 MILLIGRAM
     Route: 041
     Dates: start: 20110512, end: 20110715

REACTIONS (1)
  - CYTOMEGALOVIRUS ENTEROCOLITIS [None]
